FAERS Safety Report 4658038-5 (Version None)
Quarter: 2005Q2

REPORT INFORMATION
  Report Type: 
  Country: None (occurrence: None)
  Receive Date: 20050510
  Receipt Date: 20050216
  Transmission Date: 20051028
  Serious: Yes (Death, Hospitalization, Other)
  Sender: FDA-Public Use
  Company Number: US-MERCK-0502USA02339

PATIENT
  Age: 74 Year
  Sex: Male
  Weight: 82 kg

DRUGS (7)
  1. VIOXX [Suspect]
     Indication: RHEUMATOID ARTHRITIS
     Route: 048
     Dates: start: 20000814, end: 20010301
  2. MOTRIN [Concomitant]
     Route: 065
     Dates: start: 19990101, end: 20010301
  3. TYLENOL (CAPLET) [Concomitant]
     Route: 065
     Dates: start: 19990101, end: 20010301
  4. [THERAPY UNSPECIFIED] [Concomitant]
     Route: 065
  5. [THERAPY UNSPECIFIED] [Concomitant]
     Route: 065
  6. [THERAPY UNSPECIFIED] [Concomitant]
     Route: 065
  7. GASTROINTESTINAL PREPARATIONS (UNSPECIFIED) [Concomitant]
     Route: 065

REACTIONS (15)
  - ANGINA PECTORIS [None]
  - ANXIETY [None]
  - CARDIAC FAILURE CONGESTIVE [None]
  - CARDIOPULMONARY FAILURE [None]
  - CHEST PAIN [None]
  - CORONARY ARTERY DISEASE [None]
  - DEPRESSION [None]
  - DISTURBANCE IN ATTENTION [None]
  - HEART RATE IRREGULAR [None]
  - HERNIA [None]
  - IRRITABILITY [None]
  - MOOD SWINGS [None]
  - PANIC ATTACK [None]
  - RESPIRATORY ARREST [None]
  - SLEEP DISORDER [None]
